FAERS Safety Report 7094667-X (Version None)
Quarter: 2010Q4

REPORT INFORMATION
  Report Type: 
  Country: None (occurrence: None)
  Receive Date: 20101110
  Receipt Date: 20101104
  Transmission Date: 20110411
  Serious: Yes (Other)
  Sender: FDA-Public Use
  Company Number: US-PFIZER INC-2010141373

PATIENT
  Sex: Female

DRUGS (1)
  1. PROCAINE BENZYLPENICILLIN [Suspect]

REACTIONS (1)
  - STEVENS-JOHNSON SYNDROME [None]
